FAERS Safety Report 9013866 (Version 2)
Quarter: 2013Q1

REPORT INFORMATION
  Report Type: Spontaneous
  Country: US (occurrence: US)
  Receive Date: 20130115
  Receipt Date: 20130123
  Transmission Date: 20140127
  Serious: No
  Sender: FDA-Public Use
  Company Number: US-009507513-1301USA004746

PATIENT
  Age: 39 Year
  Sex: Female

DRUGS (1)
  1. PEGINTRON [Suspect]
     Dosage: A PARTIAL DOSE OF 0.3 ML
     Route: 058
     Dates: start: 20130109

REACTIONS (3)
  - Underdose [Unknown]
  - Product quality issue [Unknown]
  - No adverse event [Unknown]
